FAERS Safety Report 23683093 (Version 1)
Quarter: 2024Q1

REPORT INFORMATION
  Report Type: Spontaneous
  Country: FR (occurrence: FR)
  Receive Date: 20240328
  Receipt Date: 20240328
  Transmission Date: 20240410
  Serious: Yes (Other)
  Sender: FDA-Public Use
  Company Number: FR-JNJFOC-20240356855

PATIENT
  Age: 55 Year
  Sex: Male

DRUGS (4)
  1. SPRAVATO [Suspect]
     Active Substance: ESKETAMINE
     Indication: Product used for unknown indication
     Dates: start: 20240223
  2. SPRAVATO [Suspect]
     Active Substance: ESKETAMINE
     Dates: start: 20240227
  3. SPRAVATO [Suspect]
     Active Substance: ESKETAMINE
     Dosage: THE PATIENT INCREASED DOSE TO 56 MG AND THEN AFTER 84 MG
     Dates: start: 2024
  4. SPRAVATO [Suspect]
     Active Substance: ESKETAMINE
     Dosage: THE PHYSICIAN THEN LOWERED THE DOSAGE BACK TO 56 MG, THE PHYSICIAN THEREFORE DECIDED TO REDUCE THE D
     Dates: start: 2024

REACTIONS (2)
  - Psychotic symptom [Not Recovered/Not Resolved]
  - Off label use [Unknown]

NARRATIVE: CASE EVENT DATE: 20240223
